FAERS Safety Report 4978930-1 (Version None)
Quarter: 2006Q2

REPORT INFORMATION
  Report Type: 
  Country: None (occurrence: None)
  Receive Date: 20060417
  Receipt Date: 20060406
  Transmission Date: 20061013
  Serious: Yes (Hospitalization)
  Sender: FDA-Public Use
  Company Number: 2006043082

PATIENT
  Age: 70 Year
  Sex: Male

DRUGS (1)
  1. NIFEDIPINE [Suspect]
     Indication: ILL-DEFINED DISORDER
     Dosage: 20 MG , ORAL
     Route: 048
     Dates: start: 20050101, end: 20050501

REACTIONS (1)
  - TOXIC EPIDERMAL NECROLYSIS [None]
